FAERS Safety Report 11446940 (Version 1)
Quarter: 2015Q3

REPORT INFORMATION
  Report Type: Spontaneous
  Country: US (occurrence: US)
  Receive Date: 20150831
  Receipt Date: 20150831
  Transmission Date: 20151125
  Serious: No
  Sender: FDA-Public Use
  Company Number: US-ELI_LILLY_AND_COMPANY-US200901001770

PATIENT
  Age: 46 Year
  Sex: Male

DRUGS (9)
  1. XANAX [Concomitant]
     Active Substance: ALPRAZOLAM
  2. CYMBALTA [Suspect]
     Active Substance: DULOXETINE HYDROCHLORIDE
     Dosage: 1 D/F, UNK
  3. CYMBALTA [Suspect]
     Active Substance: DULOXETINE HYDROCHLORIDE
     Dosage: 60 MG, DAILY (1/D)
     Dates: end: 200901
  4. ANDROGEL [Concomitant]
     Active Substance: TESTOSTERONE
  5. CYMBALTA [Suspect]
     Active Substance: DULOXETINE HYDROCHLORIDE
     Dosage: 120 MG, DAILY (1/D)
  6. CYMBALTA [Suspect]
     Active Substance: DULOXETINE HYDROCHLORIDE
     Indication: MAJOR DEPRESSION
     Dosage: 60 MG, UNK
     Dates: start: 200611
  7. CYMBALTA [Suspect]
     Active Substance: DULOXETINE HYDROCHLORIDE
     Dosage: 30 MG, DAILY (1/D)
  8. SEROQUEL [Concomitant]
     Active Substance: QUETIAPINE FUMARATE
  9. VITAMIN E [Concomitant]
     Active Substance: .ALPHA.-TOCOPHEROL

REACTIONS (10)
  - Panic attack [Recovered/Resolved]
  - Drug withdrawal syndrome [Recovered/Resolved]
  - Drug withdrawal syndrome [Recovered/Resolved]
  - Dizziness [Recovered/Resolved]
  - Anxiety [Not Recovered/Not Resolved]
  - Penis disorder [Not Recovered/Not Resolved]
  - Peyronie^s disease [Not Recovered/Not Resolved]
  - Depression [Not Recovered/Not Resolved]
  - Nausea [Recovered/Resolved]
  - Neuralgia [Not Recovered/Not Resolved]

NARRATIVE: CASE EVENT DATE: 200711
